FAERS Safety Report 6150442-1 (Version None)
Quarter: 2009Q2

REPORT INFORMATION
  Report Type: 
  Country: None (occurrence: None)
  Receive Date: 20090409
  Receipt Date: 20090407
  Transmission Date: 20091009
  Serious: Yes (Other)
  Sender: FDA-Public Use
  Company Number: US-JNJFOC-20090402203

PATIENT
  Sex: Female

DRUGS (4)
  1. ORTHO CYCLEN-28 [Suspect]
     Indication: DYSFUNCTIONAL UTERINE BLEEDING
     Route: 048
  2. TOPAMAX [Concomitant]
     Indication: MIGRAINE
     Route: 048
  3. ELAVIL [Concomitant]
     Indication: MIGRAINE
     Route: 048
  4. SINGULAIR [Concomitant]
     Indication: ASTHMA
     Route: 048

REACTIONS (2)
  - OFF LABEL USE [None]
  - OVARIAN CYST [None]
